FAERS Safety Report 7276535-3 (Version None)
Quarter: 2011Q1

REPORT INFORMATION
  Report Type: 
  Country: None (occurrence: None)
  Receive Date: 20110204
  Receipt Date: 20110126
  Transmission Date: 20110831
  Serious: Yes (Other)
  Sender: FDA-Public Use
  Company Number: BR-GENENTECH-313062

PATIENT
  Sex: Female
  Weight: 65 kg

DRUGS (5)
  1. RITUXIMAB [Suspect]
     Indication: SCLERODERMA
     Dosage: UNK UNK, Q6M
     Route: 042
     Dates: start: 20100815, end: 20100930
  2. ENALAPRIL MALEATE [Concomitant]
     Indication: HYPERTENSION
     Dosage: 10 MG, UNK
     Dates: start: 20000101
  3. INDOMETHACIN [Concomitant]
     Indication: PRODUCT USED FOR UNKNOWN INDICATION
     Dosage: 20 MG, UNK
  4. PANTOPRAZOLE [Concomitant]
     Indication: PRODUCT USED FOR UNKNOWN INDICATION
     Dosage: 40 MG, UNK
  5. AMITRIPTYLINE HCL [Concomitant]
     Indication: PRODUCT USED FOR UNKNOWN INDICATION
     Dosage: 5 MG, UNK

REACTIONS (4)
  - DRUG INEFFECTIVE [None]
  - DECREASED APPETITE [None]
  - PULMONARY FIBROSIS [None]
  - ARRHYTHMIA [None]
